FAERS Safety Report 26112393 (Version 1)
Quarter: 2025Q4

REPORT INFORMATION
  Report Type: Spontaneous
  Country: US (occurrence: US)
  Receive Date: 20251202
  Receipt Date: 20251202
  Transmission Date: 20260118
  Serious: Yes (Hospitalization)
  Sender: ELI LILLY AND COMPANY
  Company Number: US-ELI_LILLY_AND_COMPANY-US202511024813

PATIENT
  Age: 63 Year
  Sex: Male

DRUGS (1)
  1. TIRZEPATIDE [Suspect]
     Active Substance: TIRZEPATIDE
     Indication: Product used for unknown indication

REACTIONS (4)
  - Acute cholecystitis necrotic [Recovered/Resolved]
  - Biliary obstruction [Recovered/Resolved]
  - Liver injury [Recovered/Resolved]
  - Klebsiella test positive [Unknown]
